FAERS Safety Report 21227634 (Version 1)
Quarter: 2022Q3

REPORT INFORMATION
  Report Type: Spontaneous
  Country: US (occurrence: US)
  Receive Date: 20220818
  Receipt Date: 20220818
  Transmission Date: 20221027
  Serious: Yes (Hospitalization, Other)
  Sender: FDA-Public Use
  Company Number: US-PFIZER INC-PV202200045190

PATIENT
  Age: 70 Year
  Sex: Female

DRUGS (1)
  1. XELJANZ [Suspect]
     Active Substance: TOFACITINIB CITRATE
     Dosage: UNK

REACTIONS (8)
  - Ulcer [Unknown]
  - Hyponatraemic syndrome [Unknown]
  - Diabetes mellitus [Unknown]
  - Arthritis [Unknown]
  - Limb discomfort [Unknown]
  - Fall [Unknown]
  - Arthralgia [Unknown]
  - Anxiety [Unknown]
